FAERS Safety Report 7021571-5 (Version None)
Quarter: 2010Q3

REPORT INFORMATION
  Report Type: 
  Country: None (occurrence: None)
  Receive Date: 20100928
  Receipt Date: 20100920
  Transmission Date: 20110219
  Serious: Yes (Other)
  Sender: FDA-Public Use
  Company Number: TRP_07278_2010

PATIENT
  Age: 17 Year
  Sex: Female

DRUGS (4)
  1. RIBASPHERE [Suspect]
     Indication: HEPATITIS C
     Dosage: (DF) ; (DF)
     Dates: end: 20100101
  2. PEGASYS [Suspect]
     Indication: HEPATITIS C
     Dosage: (DF) ; (DF)
     Dates: start: 20100901, end: 20100915
  3. BIRTH CONTROL PILLS [Concomitant]
  4. DEPO-PROVERA [Concomitant]

REACTIONS (10)
  - BILIARY CYST [None]
  - DRUG EXPOSURE DURING PREGNANCY [None]
  - FAMILY STRESS [None]
  - HEPATITIS C RNA POSITIVE [None]
  - MUSCLE SPASMS [None]
  - NO THERAPEUTIC RESPONSE [None]
  - PAIN IN EXTREMITY [None]
  - PREGNANCY [None]
  - TREATMENT NONCOMPLIANCE [None]
  - VOMITING [None]
